FAERS Safety Report 19130334 (Version 5)
Quarter: 2021Q4

REPORT INFORMATION
  Report Type: Spontaneous
  Country: JP (occurrence: JP)
  Receive Date: 20210413
  Receipt Date: 20211216
  Transmission Date: 20220304
  Serious: Yes (Death, Hospitalization, Other)
  Sender: FDA-Public Use
  Company Number: JP-CELGENE-JPN-20210402485

PATIENT
  Age: 84 Year
  Sex: Female
  Weight: 36 kg

DRUGS (10)
  1. ISTODAX [Suspect]
     Active Substance: ROMIDEPSIN
     Indication: Peripheral T-cell lymphoma unspecified
     Route: 041
     Dates: start: 20210212, end: 20210226
  2. ISTODAX [Suspect]
     Active Substance: ROMIDEPSIN
     Dosage: 15.8 MILLIGRAM
     Route: 041
     Dates: start: 20210312, end: 20210312
  3. ISTODAX [Suspect]
     Active Substance: ROMIDEPSIN
     Dosage: 15.8 MILLIGRAM
     Route: 041
     Dates: start: 20210330, end: 20210330
  4. ISTODAX [Suspect]
     Active Substance: ROMIDEPSIN
     Route: 041
     Dates: start: 20210413, end: 20210420
  5. ISTODAX [Suspect]
     Active Substance: ROMIDEPSIN
     Dosage: 15 MILLIGRAM
     Route: 041
     Dates: start: 20210629, end: 20210629
  6. TRAMCET [Suspect]
     Active Substance: ACETAMINOPHEN\TRAMADOL
     Indication: Product used for unknown indication
     Dosage: UNKNOWN
     Route: 065
  7. TRAMCET [Suspect]
     Active Substance: ACETAMINOPHEN\TRAMADOL
     Dosage: 2 TABLET
     Route: 048
  8. BRENTUXIMAB VEDOTIN [Suspect]
     Active Substance: BRENTUXIMAB VEDOTIN
     Indication: Peripheral T-cell lymphoma unspecified
     Dosage: UNKNOWN
     Route: 065
     Dates: start: 20200525, end: 20201019
  9. FEXOFENADINE [Concomitant]
     Active Substance: FEXOFENADINE HYDROCHLORIDE
     Indication: Product used for unknown indication
     Dosage: 1 TABLET
     Route: 048
  10. SULFAMETHOXAZOLE\TRIMETHOPRIM [Concomitant]
     Active Substance: SULFAMETHOXAZOLE\TRIMETHOPRIM
     Indication: Product used for unknown indication
     Route: 048

REACTIONS (7)
  - Neuropathy peripheral [Not Recovered/Not Resolved]
  - Peripheral T-cell lymphoma unspecified [Fatal]
  - Anaemia [Recovered/Resolved]
  - Neutrophil count decreased [Recovered/Resolved]
  - Decreased appetite [Recovering/Resolving]
  - Nausea [Recovering/Resolving]
  - Vomiting [Recovering/Resolving]

NARRATIVE: CASE EVENT DATE: 20210214
